FAERS Safety Report 13367986 (Version 3)
Quarter: 2017Q2

REPORT INFORMATION
  Report Type: Other
  Country: GB (occurrence: GB)
  Receive Date: 20170324
  Receipt Date: 20170511
  Transmission Date: 20170830
  Serious: Yes (Other)
  Sender: FDA-Public Use
  Company Number: GB-MACLEODS PHARMACEUTICALS US LTD-MAC2017004483

PATIENT

DRUGS (12)
  1. ALENDRONIC ACID [Suspect]
     Active Substance: ALENDRONIC ACID
     Indication: OSTEOPOROSIS
     Dosage: 70 MG, UNK
     Route: 065
     Dates: start: 201402, end: 201608
  2. BISOPROLOL [Suspect]
     Active Substance: BISOPROLOL
     Dosage: 1.25 MG, UNK
     Route: 065
     Dates: start: 201611
  3. AMLODIPINE BESYLATE. [Suspect]
     Active Substance: AMLODIPINE BESYLATE
     Indication: HYPERTENSION
     Dosage: 5 MG, UNK
     Route: 065
     Dates: start: 201307
  4. ARIPIPRAZOLE  5 MG [Suspect]
     Active Substance: ARIPIPRAZOLE
     Indication: PRODUCT USED FOR UNKNOWN INDICATION
     Dosage: 2.5 MG, UNK
     Route: 065
     Dates: start: 201612
  5. ARIPIPRAZOLE  5 MG [Suspect]
     Active Substance: ARIPIPRAZOLE
     Dosage: 5 MG, UNK
     Route: 065
     Dates: start: 201701
  6. BISOPROLOL [Suspect]
     Active Substance: BISOPROLOL
     Indication: HYPERTENSION
     Dosage: 5 MG, UNK
     Route: 065
     Dates: start: 201502
  7. LANSOPRAZOLE. [Suspect]
     Active Substance: LANSOPRAZOLE
     Indication: PRODUCT USED FOR UNKNOWN INDICATION
     Dosage: 30 MG, ONLY TAKE ON ODD OCCASIONS
     Route: 065
  8. PROLIA [Suspect]
     Active Substance: DENOSUMAB
     Indication: OSTEOPOROSIS
     Dosage: UNK, (2ND INJECTION, SUPPOSED TO BE ON 14 FEB 2017 BUT WAS CANCELLED AND NEXT DATE WAS 28 MAR 2017)
     Route: 065
     Dates: start: 201608
  9. AMITRIPTYLINE [Suspect]
     Active Substance: AMITRIPTYLINE
     Indication: PRODUCT USED FOR UNKNOWN INDICATION
     Dosage: 25 MG, (TAKEN 2X50 MG ONLY ON ODD OCCASION)
     Route: 065
  10. DOXAZOSIN [Suspect]
     Active Substance: DOXAZOSIN\DOXAZOSIN MESYLATE
     Indication: HYPERTENSION
     Dosage: 4 MG, UNK (TAKING SINCE 1990S)
     Route: 048
     Dates: start: 1990
  11. ADCAL-D3 [Suspect]
     Active Substance: CALCIUM CARBONATE\CHOLECALCIFEROL
     Indication: OSTEOPOROSIS
     Dosage: UNK
     Route: 065
     Dates: start: 201402
  12. OXPRENOLOL [Suspect]
     Active Substance: OXPRENOLOL
     Indication: HYPERTENSION
     Dosage: 160 MG, UNK
     Route: 048
     Dates: start: 201502

REACTIONS (17)
  - Chest discomfort [Unknown]
  - Rectal prolapse [Unknown]
  - Bone pain [Unknown]
  - Muscle spasms [Unknown]
  - Urinary tract infection [Unknown]
  - Dysuria [Unknown]
  - Headache [Unknown]
  - Abdominal discomfort [Unknown]
  - Myalgia [Unknown]
  - Dyspnoea [Unknown]
  - Burning sensation [Unknown]
  - Arthralgia [Unknown]
  - Erythema [Unknown]
  - Pain [Unknown]
  - Constipation [Unknown]
  - Influenza like illness [Unknown]
  - Rhinorrhoea [Unknown]
